FAERS Safety Report 8477568-1 (Version None)
Quarter: 2012Q2

REPORT INFORMATION
  Report Type: 
  Country: None (occurrence: None)
  Receive Date: 20120629
  Receipt Date: 20120625
  Transmission Date: 20120825
  Serious: Yes (Other)
  Sender: FDA-Public Use
  Company Number: US-PFIZER INC-2012152642

PATIENT
  Sex: Female
  Weight: 72.562 kg

DRUGS (6)
  1. NEURONTIN [Suspect]
     Indication: NEURALGIA
     Dosage: UNK
     Dates: start: 20060801, end: 20060801
  2. LISINOPRIL [Concomitant]
     Dosage: UNK
  3. METOPROLOL [Concomitant]
     Indication: HYPERTENSION
     Dosage: 50 MG, 2X/DAY
  4. LYRICA [Suspect]
     Indication: NEURALGIA
     Dosage: UNK
     Dates: start: 20060101
  5. LYRICA [Suspect]
     Indication: HERPES ZOSTER
  6. NEURONTIN [Suspect]
     Indication: HERPES ZOSTER

REACTIONS (7)
  - ERYTHEMA [None]
  - LIMB DISCOMFORT [None]
  - SYSTEMIC LUPUS ERYTHEMATOSUS [None]
  - MALAISE [None]
  - NAUSEA [None]
  - MUSCULOSKELETAL DISCOMFORT [None]
  - DRUG INEFFECTIVE [None]
